FAERS Safety Report 13718426 (Version 2)
Quarter: 2017Q3

REPORT INFORMATION
  Report Type: Spontaneous
  Country: SE (occurrence: SE)
  Receive Date: 20170705
  Receipt Date: 20170724
  Transmission Date: 20171127
  Serious: Yes (Other)
  Sender: FDA-Public Use
  Company Number: SE-LPDUSPRD-20170886

PATIENT
  Sex: Female

DRUGS (2)
  1. FERINJECT [Suspect]
     Active Substance: FERRIC CARBOXYMALTOSE
     Dosage: 1000 MG
     Route: 065
     Dates: start: 20161123
  2. VENOFER [Suspect]
     Active Substance: IRON SUCROSE
     Dosage: 60 ML
     Route: 041
     Dates: start: 20161122, end: 20161122

REACTIONS (13)
  - Tremor [Unknown]
  - Overdose [Unknown]
  - Presyncope [Unknown]
  - Fatigue [Unknown]
  - Chest discomfort [Unknown]
  - Palpitations [Unknown]
  - Arthralgia [Unknown]
  - Malaise [Unknown]
  - Inappropriate schedule of drug administration [Unknown]
  - Dyspnoea [Unknown]
  - Angioedema [Unknown]
  - Urticaria [Unknown]
  - Anxiety [Unknown]

NARRATIVE: CASE EVENT DATE: 20161122
